FAERS Safety Report 13614451 (Version 1)
Quarter: 2017Q2

REPORT INFORMATION
  Report Type: Other
  Country: ES (occurrence: ES)
  Receive Date: 20170606
  Receipt Date: 20170606
  Transmission Date: 20170830
  Serious: Yes (Other)
  Sender: FDA-Public Use
  Company Number: ES-EMD SERONO-8161717

PATIENT
  Age: 51 Year
  Sex: Male

DRUGS (1)
  1. INTERFERON BETA-1A [Suspect]
     Active Substance: INTERFERON BETA-1A
     Indication: MULTIPLE SCLEROSIS

REACTIONS (2)
  - Macular oedema [Recovering/Resolving]
  - Diabetic retinopathy [Unknown]
